FAERS Safety Report 13462106 (Version 1)
Quarter: 2017Q2

REPORT INFORMATION
  Report Type: Spontaneous
  Country: US (occurrence: US)
  Receive Date: 20170420
  Receipt Date: 20170420
  Transmission Date: 20170830
  Serious: Yes (Other)
  Sender: FDA-Public Use
  Company Number: None

PATIENT
  Age: 76 Week
  Sex: Female
  Weight: 72 kg

DRUGS (1)
  1. SIMVASTATIN. [Suspect]
     Active Substance: SIMVASTATIN
     Indication: BLOOD CHOLESTEROL
     Route: 048
     Dates: start: 20170328, end: 20170413

REACTIONS (8)
  - Hypoaesthesia [None]
  - Dizziness [None]
  - Asthenia [None]
  - Fatigue [None]
  - Neck pain [None]
  - Product substitution issue [None]
  - Arthralgia [None]
  - Gait disturbance [None]

NARRATIVE: CASE EVENT DATE: 20170413
